FAERS Safety Report 25892713 (Version 1)
Quarter: 2025Q4

REPORT INFORMATION
  Report Type: Spontaneous
  Country: US (occurrence: US)
  Receive Date: 20251007
  Receipt Date: 20251007
  Transmission Date: 20260118
  Serious: Yes (Hospitalization, Other)
  Sender: NOVO NORDISK
  Company Number: US-NOVOPROD-1532396

PATIENT
  Age: 72 Year
  Sex: Female

DRUGS (7)
  1. TRESIBA [Suspect]
     Active Substance: INSULIN DEGLUDEC
     Indication: Latent autoimmune diabetes in adults
     Dosage: 26 IU, BID
     Route: 058
     Dates: start: 202002
  2. OZEMPIC [Suspect]
     Active Substance: SEMAGLUTIDE
     Indication: Latent autoimmune diabetes in adults
     Dosage: 1 MG, QW
     Route: 058
     Dates: start: 202009
  3. NOVOLOG [Suspect]
     Active Substance: INSULIN ASPART
     Indication: Latent autoimmune diabetes in adults
     Dosage: UNK, VARIES WITH EACH MEAL
     Route: 058
  4. HUMALOG [Concomitant]
     Active Substance: INSULIN LISPRO
     Indication: Latent autoimmune diabetes in adults
     Dosage: UNK
  5. JARDIANCE [Suspect]
     Active Substance: EMPAGLIFLOZIN
     Indication: Latent autoimmune diabetes in adults
     Dosage: UNK
     Dates: start: 2020
  6. AZITHROMYCIN ANHYDROUS [Concomitant]
     Active Substance: AZITHROMYCIN ANHYDROUS
     Indication: Product used for unknown indication
     Dosage: UNK
  7. METFORMIN HYDROCHLORIDE [Suspect]
     Active Substance: METFORMIN HYDROCHLORIDE
     Indication: Latent autoimmune diabetes in adults
     Dosage: UNK

REACTIONS (18)
  - Chest discomfort [Recovered/Resolved]
  - Chest pain [Recovered/Resolved]
  - Dyspnoea [Recovered/Resolved]
  - Asthenia [Recovered/Resolved]
  - Dizziness [Recovered/Resolved]
  - Eye infection [Recovered/Resolved]
  - Blindness [Not Recovered/Not Resolved]
  - Cataract [Unknown]
  - Glaucoma [Unknown]
  - Endophthalmitis [Recovered/Resolved]
  - Diabetes mellitus inadequate control [Unknown]
  - Hunger [Unknown]
  - Microangiopathy [Recovered/Resolved]
  - Blood glucose increased [Not Recovered/Not Resolved]
  - Blood glucose fluctuation [Not Recovered/Not Resolved]
  - Feeling abnormal [Unknown]
  - Abdominal pain upper [Unknown]
  - Diarrhoea [Unknown]

NARRATIVE: CASE EVENT DATE: 20040101
